FAERS Safety Report 15400896 (Version 1)
Quarter: 2018Q4

REPORT INFORMATION
  Report Type: Report from Study
  Country: CN (occurrence: CN)
  Receive Date: 20180919
  Receipt Date: 20180919
  Transmission Date: 20190204
  Serious: Yes (Other)
  Sender: FDA-Public Use
  Company Number: CN-ROCHE-2183627

PATIENT

DRUGS (3)
  1. XIAO AI PING (UNK INGREDIENTS) [Suspect]
     Active Substance: HERBALS
     Indication: ADENOCARCINOMA GASTRIC
     Dosage: ON DAY 1-10 (21 DAYS FOR 1 CYCLE)
     Route: 041
  2. CAPECITABINE. [Suspect]
     Active Substance: CAPECITABINE
     Indication: ADENOCARCINOMA GASTRIC
     Dosage: ON DAY 1-14 (21 DAYS FOR 1 CYCLE)
     Route: 048
  3. OXALIPLATIN. [Suspect]
     Active Substance: OXALIPLATIN
     Indication: ADENOCARCINOMA GASTRIC
     Dosage: ON DAY 1 (21 DAYS FOR 1 CYCLE)
     Route: 041

REACTIONS (9)
  - White blood cell count decreased [Unknown]
  - Palmar-plantar erythrodysaesthesia syndrome [Unknown]
  - Hepatic function abnormal [Unknown]
  - Nausea [Unknown]
  - Stomatitis [Unknown]
  - Neutrophil count decreased [Unknown]
  - Neurotoxicity [Unknown]
  - Diarrhoea [Unknown]
  - Vomiting [Unknown]
